FAERS Safety Report 23522877 (Version 1)
Quarter: 2024Q1

REPORT INFORMATION
  Report Type: Spontaneous
  Country: CA (occurrence: CA)
  Receive Date: 20240214
  Receipt Date: 20240214
  Transmission Date: 20240409
  Serious: Yes (Death, Other)
  Sender: FDA-Public Use
  Company Number: CA-002147023-NVSC2024CA031413

PATIENT

DRUGS (2)
  1. PAZOPANIB [Suspect]
     Active Substance: PAZOPANIB
     Indication: Neoplasm
     Dosage: UNK
     Route: 065
  2. XGEVA [Suspect]
     Active Substance: DENOSUMAB
     Indication: Neoplasm
     Dosage: UNK
     Route: 058

REACTIONS (6)
  - Death [Fatal]
  - Cardiac dysfunction [Fatal]
  - Gastrointestinal haemorrhage [Fatal]
  - Liver function test increased [Fatal]
  - Metastatic neoplasm [Fatal]
  - Neutropenia [Fatal]
